FAERS Safety Report 10552908 (Version 3)
Quarter: 2014Q4

REPORT INFORMATION
  Report Type: Report from Study
  Country: US (occurrence: US)
  Receive Date: 20141029
  Receipt Date: 20141117
  Transmission Date: 20150529
  Serious: Yes (Hospitalization, Other)
  Sender: FDA-Public Use
  Company Number: PHEH2014US004607

PATIENT
  Age: 45 Year
  Sex: Female
  Weight: 77.98 kg

DRUGS (2)
  1. GILENYA [Suspect]
     Active Substance: FINGOLIMOD HYDROCHLORIDE
     Dosage: 0.5 MG, QD
     Route: 048
     Dates: start: 201403, end: 20140730
  2. GILENYA [Suspect]
     Active Substance: FINGOLIMOD HYDROCHLORIDE
     Indication: MULTIPLE SCLEROSIS
     Dosage: 0.5 MG, QD
     Route: 048
     Dates: start: 20120517, end: 20140326

REACTIONS (13)
  - Injury [Not Recovered/Not Resolved]
  - Confusional state [Unknown]
  - Skin lesion [Unknown]
  - Facial bones fracture [Not Recovered/Not Resolved]
  - Rash [Recovered/Resolved]
  - Generalised tonic-clonic seizure [Recovered/Resolved]
  - Dyskinesia [Unknown]
  - Musculoskeletal stiffness [Unknown]
  - Cyanosis [Unknown]
  - Drug ineffective [Unknown]
  - Loss of consciousness [Unknown]
  - Muscle rigidity [Unknown]
  - Fatigue [Not Recovered/Not Resolved]

NARRATIVE: CASE EVENT DATE: 201401
